FAERS Safety Report 12637408 (Version 1)
Quarter: 2016Q3

REPORT INFORMATION
  Report Type: Spontaneous
  Country: US (occurrence: US)
  Receive Date: 20160809
  Receipt Date: 20160809
  Transmission Date: 20161109
  Serious: No
  Sender: FDA-Public Use
  Company Number: US-BEH-2016061058

PATIENT
  Sex: Female
  Weight: 89 kg

DRUGS (20)
  1. ASMANEX [Concomitant]
     Active Substance: MOMETASONE FUROATE
  2. PRIVIGEN [Suspect]
     Active Substance: HUMAN IMMUNOGLOBULIN G
     Indication: MOTOR NEURONE DISEASE
     Route: 042
     Dates: start: 20151203
  3. ACETAMINOPHEN. [Concomitant]
     Active Substance: ACETAMINOPHEN
  4. CLONIDINE. [Concomitant]
     Active Substance: CLONIDINE
  5. METHYLPREDNISOLONE. [Concomitant]
     Active Substance: METHYLPREDNISOLONE
  6. KLOR-CON [Concomitant]
     Active Substance: POTASSIUM CHLORIDE
  7. LISINOPRIL. [Concomitant]
     Active Substance: LISINOPRIL
  8. SODIUM CHLORIDE. [Concomitant]
     Active Substance: SODIUM CHLORIDE
  9. LOSARTAN. [Concomitant]
     Active Substance: LOSARTAN
  10. HEPARIN [Concomitant]
     Active Substance: HEPARIN SODIUM
  11. EPIPEN [Concomitant]
     Active Substance: EPINEPHRINE
  12. DIPHENHYDRAMINE. [Concomitant]
     Active Substance: DIPHENHYDRAMINE
  13. SOLU-MEDROL [Concomitant]
     Active Substance: METHYLPREDNISOLONE SODIUM SUCCINATE
  14. GAMMAKED [Concomitant]
     Active Substance: HUMAN IMMUNOGLOBULIN G
  15. BUPROPION XL [Concomitant]
     Active Substance: BUPROPION
  16. POTASSIUM [Concomitant]
     Active Substance: POTASSIUM
  17. VITAMIN D [Concomitant]
     Active Substance: CHOLECALCIFEROL
  18. PROPANOL [Concomitant]
     Active Substance: PROPRANOLOL HYDROCHLORIDE
  19. LIPITOR [Concomitant]
     Active Substance: ATORVASTATIN CALCIUM
  20. BENADRYL [Concomitant]
     Active Substance: DIPHENHYDRAMINE HYDROCHLORIDE

REACTIONS (1)
  - Device issue [Unknown]
